FAERS Safety Report 4491880-2 (Version None)
Quarter: 2004Q4

REPORT INFORMATION
  Report Type: 
  Country: None (occurrence: None)
  Receive Date: 20041028
  Receipt Date: 20041028
  Transmission Date: 20050328
  Serious: Yes (Other)
  Sender: FDA-Public Use
  Company Number: None

PATIENT
  Sex: Male

DRUGS (1)
  1. DR. SCHOLL'S ONE-STEP CALLUS REMOVERS DISC [Suspect]
     Indication: CYST
     Dosage: TOPICAL
     Route: 061

REACTIONS (18)
  - ANXIETY [None]
  - CHEMICAL BURN OF SKIN [None]
  - DEPRESSION [None]
  - DIFFICULTY IN WALKING [None]
  - DYSSTASIA [None]
  - IMPAIRED WORK ABILITY [None]
  - INFECTED CYST [None]
  - INFECTION [None]
  - INFLAMMATION [None]
  - INSOMNIA [None]
  - LOCALISED INFECTION [None]
  - PAIN [None]
  - RELATIONSHIP BREAKDOWN [None]
  - SELF-MEDICATION [None]
  - SKIN DISORDER [None]
  - SKIN LESION [None]
  - SKIN MACERATION [None]
  - SKIN PAPILLOMA [None]
